FAERS Safety Report 6011232-3 (Version None)
Quarter: 2008Q4

REPORT INFORMATION
  Report Type: 
  Country: None (occurrence: None)
  Receive Date: 20081218
  Receipt Date: 20081209
  Transmission Date: 20090506
  Serious: Yes (Hospitalization, Disabling)
  Sender: FDA-Public Use
  Company Number: US-MERCK-0704USA01484

PATIENT
  Age: 57 Year
  Sex: Female
  Weight: 60 kg

DRUGS (6)
  1. FOSAMAX [Suspect]
     Indication: OSTEOPOROSIS
     Route: 048
     Dates: start: 20020115, end: 20020226
  2. FOSAMAX [Suspect]
     Route: 048
     Dates: start: 20020226, end: 20060203
  3. FOSAMAX [Suspect]
     Indication: OSTEOPENIA
     Route: 048
     Dates: start: 20020115, end: 20020226
  4. FOSAMAX [Suspect]
     Route: 048
     Dates: start: 20020226, end: 20060203
  5. PLAQUENIL [Concomitant]
     Indication: SYSTEMIC LUPUS ERYTHEMATOSUS
     Route: 065
     Dates: start: 20020101
  6. METHOTREXATE [Concomitant]
     Indication: SYSTEMIC LUPUS ERYTHEMATOSUS
     Route: 065
     Dates: start: 20020101, end: 20030101

REACTIONS (10)
  - ALOPECIA [None]
  - ANXIETY [None]
  - DEPRESSION [None]
  - FRACTURED SACRUM [None]
  - INFLAMMATION [None]
  - JAW FRACTURE [None]
  - OSTEOMYELITIS [None]
  - PELVIC FRACTURE [None]
  - TOOTH ABSCESS [None]
  - WEIGHT DECREASED [None]
